FAERS Safety Report 15679433 (Version 2)
Quarter: 2018Q4

REPORT INFORMATION
  Report Type: Spontaneous
  Country: ES (occurrence: ES)
  Receive Date: 20181203
  Receipt Date: 20181203
  Transmission Date: 20190205
  Serious: Yes (Hospitalization)
  Sender: FDA-Public Use
  Company Number: ES-HETERO CORPORATE-HET2018ES01426

PATIENT
  Age: 79 Year
  Sex: Female

DRUGS (7)
  1. METOCLOPRAMIDA [Suspect]
     Active Substance: METOCLOPRAMIDE HYDROCHLORIDE
     Indication: VOMITING
     Dosage: 10 MG
     Route: 048
     Dates: start: 20170517
  2. BEMIPARIN [Suspect]
     Active Substance: BEMIPARIN
     Indication: PROPHYLAXIS
     Dosage: 3500 IU PER DAY
     Route: 058
     Dates: start: 20170622
  3. TARGIN [Suspect]
     Active Substance: NALOXONE HYDROCHLORIDE\OXYCODONE HYDROCHLORIDE
     Indication: CAUDA EQUINA SYNDROME
     Dosage: 1 DF, PER 12 HOURS, ORAL
     Route: 048
     Dates: start: 20170613
  4. DALACIN                            /00166002/ [Suspect]
     Active Substance: CLINDAMYCIN HYDROCHLORIDE
     Indication: PRODUCT USED FOR UNKNOWN INDICATION
     Dosage: 300 MG, PER 8 HOURS
     Route: 048
     Dates: start: 20170609
  5. HALOPERIDOL. [Suspect]
     Active Substance: HALOPERIDOL
     Indication: PRODUCT USED FOR UNKNOWN INDICATION
     Dosage: 10 GTT PER DAY
     Route: 048
     Dates: start: 20170613
  6. LEVOFLOXACIN. [Suspect]
     Active Substance: LEVOFLOXACIN
     Indication: PLEURAL EFFUSION
     Dosage: 500 MG
     Dates: start: 20170602, end: 20170626
  7. DULOXETINA                         /01749301/ [Suspect]
     Active Substance: DULOXETINE
     Indication: ADJUSTMENT DISORDER
     Dosage: 60 MG
     Route: 048
     Dates: start: 20170613, end: 20170625

REACTIONS (2)
  - Pruritus [Recovered/Resolved]
  - Rash maculo-papular [Recovered/Resolved]

NARRATIVE: CASE EVENT DATE: 20170622
